FAERS Safety Report 6936726-5 (Version None)
Quarter: 2010Q3

REPORT INFORMATION
  Report Type: 
  Country: None (occurrence: None)
  Receive Date: 20100823
  Receipt Date: 20100813
  Transmission Date: 20110219
  Serious: Yes (Hospitalization, Other)
  Sender: FDA-Public Use
  Company Number: US-GENZYME-CLOF-1000957

PATIENT
  Sex: Male
  Weight: 14.4 kg

DRUGS (9)
  1. CLOLAR [Suspect]
     Indication: ACUTE LYMPHOCYTIC LEUKAEMIA
     Dosage: 27 MG, QDX5
     Route: 042
     Dates: start: 20090916, end: 20090920
  2. ACYCLOVIR [Concomitant]
     Indication: ANTIVIRAL PROPHYLAXIS
     Dosage: 295 MG, UNK
     Route: 042
     Dates: start: 20090929, end: 20091213
  3. IMMUNE GLOBULIN NOS [Concomitant]
     Indication: PRODUCT USED FOR UNKNOWN INDICATION
     Dosage: 5 G, UNK
     Route: 042
     Dates: start: 20091019, end: 20100312
  4. IMMUNE GLOBULIN NOS [Concomitant]
     Dosage: 5 G, UNK
     Route: 042
     Dates: start: 20091019, end: 20100312
  5. FLAGYL [Concomitant]
     Indication: PROPHYLAXIS
     Dosage: 90 MG, UNK
     Route: 042
     Dates: start: 20090914, end: 20091211
  6. CELLCEPT [Concomitant]
     Indication: PROPHYLAXIS AGAINST GRAFT VERSUS HOST DISEASE
     Dosage: 100 MG, UNK
     Route: 042
     Dates: start: 20090922, end: 20091211
  7. CELLCEPT [Concomitant]
     Dosage: 200 MG, UNK
     Route: 042
     Dates: start: 20091211, end: 20091213
  8. NYSTATIN [Concomitant]
     Indication: ANTIFUNGAL PROPHYLAXIS
     Dosage: 500000 U, UNK
     Route: 048
     Dates: start: 20090921, end: 20091211
  9. NYSTATIN [Concomitant]
     Dosage: 1000000 U, UNK
     Route: 048
     Dates: start: 20091211, end: 20091213

REACTIONS (4)
  - ACUTE GRAFT VERSUS HOST DISEASE IN SKIN [None]
  - ENTEROCOCCAL BACTERAEMIA [None]
  - PYREXIA [None]
  - STAPHYLOCOCCAL BACTERAEMIA [None]
